FAERS Safety Report 16047114 (Version 2)
Quarter: 2019Q2

REPORT INFORMATION
  Report Type: Spontaneous
  Country: US (occurrence: US)
  Receive Date: 20190307
  Receipt Date: 20190412
  Transmission Date: 20190711
  Serious: No
  Sender: FDA-Public Use
  Company Number: US-ASTRAZENECA-2019SE22883

PATIENT
  Age: 79 Year
  Sex: Male
  Weight: 106.6 kg

DRUGS (8)
  1. LASIX [Concomitant]
     Active Substance: FUROSEMIDE
  2. GLUCOSAMINE [Concomitant]
     Active Substance: GLUCOSAMINE
  3. PRINIVIL [Concomitant]
     Active Substance: LISINOPRIL
     Dosage: 20
  4. HYALURONIC ACID [Concomitant]
     Active Substance: HYALURONIC ACID
  5. LIPITOR [Concomitant]
     Active Substance: ATORVASTATIN CALCIUM
     Dosage: 80
  6. BYDUREON BCISE [Suspect]
     Active Substance: EXENATIDE
     Indication: TYPE 2 DIABETES MELLITUS
     Route: 058
     Dates: start: 201812
  7. ASA [Concomitant]
     Active Substance: ASPIRIN
     Dosage: 81
  8. METFORMIN [Concomitant]
     Active Substance: METFORMIN HYDROCHLORIDE
     Indication: TYPE 2 DIABETES MELLITUS
     Route: 048

REACTIONS (5)
  - Contusion [Unknown]
  - Injection site nodule [Not Recovered/Not Resolved]
  - Lipase decreased [Not Recovered/Not Resolved]
  - Skin discolouration [Unknown]
  - Injection site mass [Unknown]
